FAERS Safety Report 7000392-3 (Version None)
Quarter: 2010Q3

REPORT INFORMATION
  Report Type: 
  Country: None (occurrence: None)
  Receive Date: 20100920
  Receipt Date: 20100317
  Transmission Date: 20110219
  Serious: No
  Sender: FDA-Public Use
  Company Number: US-ASTRAZENECA-2010SE11658

PATIENT
  Age: 64 Year
  Sex: Male
  Weight: 76.2 kg

DRUGS (6)
  1. SEROQUEL [Suspect]
     Indication: SLEEP DISORDER
     Route: 048
     Dates: start: 20050501
  2. DIOVAN [Concomitant]
     Indication: HYPERTENSION
  3. MELATONIN [Concomitant]
  4. RESTORIL [Concomitant]
  5. LUNESTA [Concomitant]
  6. AMBIEN [Concomitant]

REACTIONS (1)
  - OBSESSIVE THOUGHTS [None]
